FAERS Safety Report 9608483 (Version 2)
Quarter: 2013Q4

REPORT INFORMATION
  Report Type: Spontaneous
  Country: US (occurrence: US)
  Receive Date: 20131009
  Receipt Date: 20131112
  Transmission Date: 20140711
  Serious: Yes (Hospitalization)
  Sender: FDA-Public Use
  Company Number: US-FRI-1000049620

PATIENT
  Age: 70 Year
  Sex: Female

DRUGS (7)
  1. VIIBRYD [Suspect]
     Indication: DEPRESSION
     Dosage: 10 MG
     Route: 048
     Dates: start: 201308, end: 2013
  2. VIIBRYD [Suspect]
     Dosage: 20 MG
     Route: 048
     Dates: start: 2013, end: 2013
  3. VIIBRYD [Suspect]
     Indication: DEPRESSION
     Dosage: 40 MG
     Route: 048
     Dates: start: 2013, end: 201309
  4. METOPROLOL [Suspect]
     Indication: HYPERTENSION
     Dates: end: 2013
  5. LOVASTATIN [Concomitant]
     Indication: BLOOD CHOLESTEROL INCREASED
  6. INSULIN [Concomitant]
     Indication: DIABETES MELLITUS
  7. LEVOTHYROXINE [Concomitant]
     Indication: HYPOTHYROIDISM

REACTIONS (4)
  - Syncope [Recovered/Resolved]
  - Head injury [Recovered/Resolved]
  - Head discomfort [Not Recovered/Not Resolved]
  - Pruritus [Recovered/Resolved]
